FAERS Safety Report 15856127 (Version 1)
Quarter: 2019Q1

REPORT INFORMATION
  Report Type: Report from Study
  Country: DE (occurrence: DE)
  Receive Date: 20190123
  Receipt Date: 20190123
  Transmission Date: 20190417
  Serious: Yes (Death, Life-Threatening, Hospitalization, Other)
  Sender: FDA-Public Use
  Company Number: DE-TEVA-2019-DE-1001702

PATIENT
  Age: 83 Year
  Sex: Male
  Weight: 71 kg

DRUGS (20)
  1. PALLADON [Concomitant]
     Active Substance: HYDROMORPHONE
     Indication: PAIN MANAGEMENT
     Dosage: DOSAGE FORM: UNSPECIFIED, ON DEMAND AS PAIN RESCUE MEDICATION
     Route: 065
     Dates: start: 20140415
  2. TRENANTON [Concomitant]
     Indication: PROSTATE CANCER
     Dosage: DAILY DOSE: 11.25 MG MILLIGRAM(S) EVERY 3 MONTH
     Route: 065
     Dates: start: 20130410
  3. FENTANYL. [Concomitant]
     Active Substance: FENTANYL
     Indication: BONE PAIN
     Dosage: 100 MICROGRAM DAILY; DOSAGE FORM: UNSPECIFIED
     Dates: start: 20140415
  4. PREDNISOLON [Suspect]
     Active Substance: PREDNISOLONE
     Indication: PROSTATE CANCER METASTATIC
     Dosage: 10 MILLIGRAM DAILY; DOSAGE FORM: UNSPECIFIED
     Route: 065
     Dates: start: 20141117
  5. RASILEZ [Concomitant]
     Active Substance: ALISKIREN
     Indication: HYPERTENSION
     Dosage: 150 MILLIGRAM DAILY; DOSAGE FORM: UNSPECIFIED
     Route: 065
     Dates: start: 20140415
  6. CLINDAMYCIN. [Concomitant]
     Active Substance: CLINDAMYCIN
     Indication: OSTEITIS
     Dates: start: 20150109, end: 20150203
  7. AMLODIPIN [Concomitant]
     Active Substance: AMLODIPINE BESYLATE
     Indication: HYPERTENSION
     Dosage: 5 MILLIGRAM DAILY; DOSAGE FORM: UNSPECIFIED
     Route: 065
     Dates: start: 20140415
  8. TORASEMID [Concomitant]
     Active Substance: TORSEMIDE
     Indication: OEDEMA
     Dates: start: 20150109, end: 20150203
  9. ABIRATERON ACETAT [Suspect]
     Active Substance: ABIRATERONE ACETATE
     Indication: PROSTATE CANCER METASTATIC
     Dosage: 1000 MILLIGRAM DAILY;
     Route: 048
     Dates: start: 20141117, end: 20141125
  10. ABIRATERON ACETAT [Suspect]
     Active Substance: ABIRATERONE ACETATE
     Route: 048
     Dates: start: 20141214, end: 20150117
  11. PALLADON [Concomitant]
     Active Substance: HYDROMORPHONE
     Indication: PAIN MANAGEMENT
     Dosage: 24 MILLIGRAM DAILY; DOSAGE FORM: UNSPECIFIED
     Route: 065
     Dates: start: 20141128
  12. HYDROCORTISON [Concomitant]
     Active Substance: HYDROCORTISONE
     Indication: ADRENAL INSUFFICIENCY
     Dates: start: 20150109, end: 20150203
  13. PALLADON [Concomitant]
     Active Substance: HYDROMORPHONE
     Indication: BONE PAIN
     Dosage: DOSAGE FORM: UNSPECIFIED, ON DEMAND AS PAIN RESCUE MEDICATION
     Route: 065
     Dates: start: 20140415
  14. AMITRIPTYLIN [Concomitant]
     Active Substance: AMITRIPTYLINE
     Indication: SOMNOLENCE
     Dates: start: 20150109, end: 20150203
  15. KALZIUM [Concomitant]
     Indication: HYPOCALCAEMIA
     Dosage: 600 MILLIGRAM DAILY; DOSAGE FORM: UNSPECIFIED
     Route: 065
     Dates: start: 20140415
  16. PALLADON [Concomitant]
     Active Substance: HYDROMORPHONE
     Indication: BONE PAIN
     Dosage: 24 MILLIGRAM DAILY; DOSAGE FORM: UNSPECIFIED
     Route: 065
     Dates: start: 20141128
  17. LORAZEPAM. [Concomitant]
     Active Substance: LORAZEPAM
     Indication: INSOMNIA
     Dosage: 1 MILLIGRAM DAILY; DOSAGE FORM: UNSPECIFIED
     Route: 065
     Dates: start: 20140415
  18. CALCIUM [Concomitant]
     Active Substance: CALCIUM
     Indication: HYPOCALCAEMIA
     Dosage: 600 MILLIGRAM DAILY; DOSAGE FORM: UNSPECIFIED
     Route: 065
     Dates: start: 20140415
  19. NOVAMINSULFON [Concomitant]
     Active Substance: METAMIZOLE
     Indication: BONE PAIN
     Dosage: DOSAGE FORM: UNSPECIFIED, 90
     Route: 065
     Dates: start: 20140415
  20. PANTOZOL [Concomitant]
     Active Substance: PANTOPRAZOLE SODIUM
     Indication: GASTROINTESTINAL DISORDER THERAPY
     Dosage: 30 MILLIGRAM DAILY; DAILY DOSE: 30 MG MILLIGRAM(S) EVERY DAY
     Dates: start: 20150109, end: 20150203

REACTIONS (7)
  - Hepatic function abnormal [Fatal]
  - Prostatic specific antigen increased [Unknown]
  - Gamma-glutamyltransferase increased [Unknown]
  - Prostate cancer metastatic [Fatal]
  - Anaemia of malignant disease [Recovered/Resolved]
  - Alanine aminotransferase increased [Unknown]
  - Metastases to liver [Recovered/Resolved with Sequelae]

NARRATIVE: CASE EVENT DATE: 20141205
